FAERS Safety Report 5883978-9 (Version None)
Quarter: 2008Q3

REPORT INFORMATION
  Report Type: 
  Country: None (occurrence: None)
  Receive Date: 20080915
  Receipt Date: 20080903
  Transmission Date: 20090109
  Serious: Yes (Hospitalization)
  Sender: FDA-Public Use
  Company Number: GB-ROCHE-385288

PATIENT
  Age: 13 Year
  Sex: Male
  Weight: 58 kg

DRUGS (2)
  1. ISOTRETINOIN [Suspect]
     Indication: ACNE
     Route: 048
     Dates: start: 20000207, end: 20000628
  2. ISOTRETINOIN [Suspect]
     Route: 048

REACTIONS (5)
  - EPISTAXIS [None]
  - GUILLAIN-BARRE SYNDROME [None]
  - HEADACHE [None]
  - LETHARGY [None]
  - PARESIS [None]
